FAERS Safety Report 14225965 (Version 4)
Quarter: 2018Q1

REPORT INFORMATION
  Report Type: Spontaneous
  Country: US (occurrence: US)
  Receive Date: 20171127
  Receipt Date: 20180222
  Transmission Date: 20180508
  Serious: Yes (Death, Hospitalization)
  Sender: FDA-Public Use
  Company Number: US-ELI_LILLY_AND_COMPANY-US201711007166

PATIENT
  Age: 79 Year
  Sex: Female
  Weight: 98.41 kg

DRUGS (3)
  1. TYVASO [Suspect]
     Active Substance: TREPROSTINIL
     Indication: PULMONARY ARTERIAL HYPERTENSION
     Dosage: 3-9 U, QID
     Route: 055
     Dates: start: 20170517
  2. ADCIRCA [Suspect]
     Active Substance: TADALAFIL
     Indication: PULMONARY HYPERTENSION
     Dosage: 2 DF, DAILY
     Route: 048
     Dates: start: 20150409
  3. VELETRI [Concomitant]
     Active Substance: EPOPROSTENOL
     Dosage: UNK, UNKNOWN
     Route: 065

REACTIONS (4)
  - Pulmonary hypertension [Fatal]
  - Oxygen saturation decreased [Unknown]
  - Dyspnoea [Unknown]
  - Cyanosis [Unknown]

NARRATIVE: CASE EVENT DATE: 20180115
